FAERS Safety Report 4702262-X (Version None)
Quarter: 2005Q2

REPORT INFORMATION
  Report Type: 
  Country: None (occurrence: None)
  Receive Date: 20050628
  Receipt Date: 20050628
  Transmission Date: 20051028
  Serious: No
  Sender: FDA-Public Use
  Company Number: None

PATIENT
  Sex: Female
  Weight: 104 kg

DRUGS (5)
  1. CYCLOPHOSPHAMIDE [Suspect]
     Indication: BREAST CANCER
     Dates: start: 20040217
  2. DOXORUBICIN HCL [Suspect]
     Dosage: (CA) 4 VS 6 CYCLES
  3. PACLITAXEL [Suspect]
     Dosage: 4 VS 6 CYCLES
  4. CARBIDOPA/LEVODOPA ER [Concomitant]
  5. SELEGILINE HCL [Concomitant]

REACTIONS (2)
  - CONDITION AGGRAVATED [None]
  - PARKINSON'S DISEASE [None]
